FAERS Safety Report 10450989 (Version 1)
Quarter: 2014Q3

REPORT INFORMATION
  Report Type: Report from Study
  Country: US (occurrence: US)
  Receive Date: 20140912
  Receipt Date: 20140912
  Transmission Date: 20150326
  Serious: Yes (Hospitalization, Other)
  Sender: FDA-Public Use
  Company Number: US-TEVA-507647USA

PATIENT
  Age: 78 Year
  Sex: Female
  Weight: 88.08 kg

DRUGS (4)
  1. FLUOROURACIL. [Suspect]
     Active Substance: FLUOROURACIL
     Indication: ADENOCARCINOMA OF COLON
     Dosage: REGIMEN #2 OVER 46-48 HOURS
     Route: 042
     Dates: start: 20120911
  2. ELOXATIN (OXALIPLATIN) [Suspect]
     Active Substance: OXALIPLATIN
     Indication: ADENOCARCINOMA OF COLON
     Dosage: OVER 2 HOURS ON DAY 1
     Route: 042
     Dates: start: 20120911
  3. LEUCOVORIN CALCIUM. [Suspect]
     Active Substance: LEUCOVORIN CALCIUM
     Indication: ADENOCARCINOMA OF COLON
     Dosage: OVER 2 HOURS ON ONE DAY
     Route: 042
     Dates: start: 20110911
  4. CELECOXIB/PLACEBO [Suspect]
     Active Substance: CELECOXIB\PLACEBO
     Indication: ADENOCARCINOMA OF COLON
     Dosage: BLINDED, INFORMATION WITHHELD
     Dates: start: 20120911, end: 20121002

REACTIONS (1)
  - Lung infection [Recovered/Resolved]

NARRATIVE: CASE EVENT DATE: 20121009
